FAERS Safety Report 7956950-2 (Version None)
Quarter: 2011Q4

REPORT INFORMATION
  Report Type: 
  Country: None (occurrence: None)
  Receive Date: 20111205
  Receipt Date: 20111205
  Transmission Date: 20120403
  Serious: Yes (Life-Threatening)
  Sender: FDA-Public Use
  Company Number: None

PATIENT
  Age: 71 Year
  Sex: Male
  Weight: 74.842 kg

DRUGS (1)
  1. REQUIP [Suspect]

REACTIONS (6)
  - CONVULSION [None]
  - INCOHERENT [None]
  - LOSS OF CONSCIOUSNESS [None]
  - URINARY INCONTINENCE [None]
  - POLLAKIURIA [None]
  - HEAD INJURY [None]
